FAERS Safety Report 20510959 (Version 1)
Quarter: 2022Q1

REPORT INFORMATION
  Report Type: Spontaneous
  Country: ES (occurrence: ES)
  Receive Date: 20220224
  Receipt Date: 20220224
  Transmission Date: 20220423
  Serious: Yes (Other)
  Sender: FDA-Public Use
  Company Number: ES-drreddys-LIT/SPN/22/0147137

PATIENT
  Sex: Female

DRUGS (7)
  1. IMATINIB [Suspect]
     Active Substance: IMATINIB
     Indication: Metastases to peritoneum
     Dates: start: 201007, end: 201201
  2. IMATINIB [Suspect]
     Active Substance: IMATINIB
     Indication: Gastrointestinal stromal tumour
     Dosage: DOSE INCREASED
     Dates: start: 201201, end: 201209
  3. IMATINIB [Suspect]
     Active Substance: IMATINIB
     Dates: end: 201906
  4. SUNITINIB [Suspect]
     Active Substance: SUNITINIB
     Indication: Gastrointestinal stromal tumour
     Dates: start: 201210
  5. SUNITINIB [Suspect]
     Active Substance: SUNITINIB
     Dosage: DOSE WAS REDUCED
     Dates: start: 201307, end: 201404
  6. SORAFENIB [Suspect]
     Active Substance: SORAFENIB
     Indication: Product used for unknown indication
     Dates: start: 201404, end: 201506
  7. REGORAFENIB [Concomitant]
     Active Substance: REGORAFENIB
     Indication: Disease progression
     Dosage: REDUCED DOSE OF REGORAFENIB
     Dates: end: 201605

REACTIONS (5)
  - Disease progression [Recovering/Resolving]
  - Drug intolerance [Unknown]
  - Skin toxicity [Unknown]
  - Oedema [Recovering/Resolving]
  - Haematotoxicity [Recovering/Resolving]
